FAERS Safety Report 9246835 (Version 2)
Quarter: 2013Q2

REPORT INFORMATION
  Report Type: Report from Study
  Country: CA (occurrence: CA)
  Receive Date: 20130422
  Receipt Date: 20130503
  Transmission Date: 20140414
  Serious: Yes (Hospitalization)
  Sender: FDA-Public Use
  Company Number: CA-ABBOTT-13P-028-1077620-00

PATIENT
  Age: 82 Year
  Sex: Male
  Weight: 102.15 kg

DRUGS (1)
  1. LUPRON DEPOT [Suspect]
     Indication: PROSTATE CANCER
     Dosage: LATEST DOSE: 21 DEC 2012
     Route: 030
     Dates: start: 2009

REACTIONS (3)
  - Balance disorder [Recovered/Resolved]
  - Fall [Recovered/Resolved]
  - Contusion [Unknown]
